FAERS Safety Report 6679929-X (Version None)
Quarter: 2010Q2

REPORT INFORMATION
  Report Type: 
  Country: None (occurrence: None)
  Receive Date: 20100409
  Receipt Date: 20100324
  Transmission Date: 20101027
  Serious: Yes (Other)
  Sender: FDA-Public Use
  Company Number: DSU-2010-00068

PATIENT
  Age: 69 Year
  Sex: Female

DRUGS (13)
  1. BENICAR [Suspect]
     Indication: DRUG USE FOR UNKNOWN INDICATION
     Dosage: 20 MG (20 MG, QD), PER ORAL
     Route: 048
     Dates: start: 20091014
  2. MULTAQ [Suspect]
     Indication: ATRIAL FIBRILLATION
     Dosage: 800 MG (400 MG, BID), PER ORAL
     Route: 048
     Dates: start: 20091014
  3. COREG [Suspect]
     Indication: DRUG USE FOR UNKNOWN INDICATION
     Dosage: 12.5 MG (6.25 MG, BID) PER ORAL
     Route: 048
     Dates: start: 20091014
  4. CARDIZEM [Suspect]
     Indication: DRUG USE FOR UNKNOWN INDICATION
     Dosage: 240 MG (240 MG, QD), PER ORAL
     Route: 048
     Dates: start: 20091014
  5. MAG-OX (MAGNESIUM OXIDE) (MAGNESIUM OXIDE) [Concomitant]
  6. GLUCOSAMINE (GLUCOSAMINE) (GLUCOSAMINE) [Concomitant]
  7. CRESTOR [Concomitant]
  8. ACTOS (PIOGLITAZONE) (PIOGLITAZONE) [Concomitant]
  9. INSULIN (INSULIN) (INSULIN) [Concomitant]
  10. COENZYME Q10 (UBIDECARENONE) (UBIDECARENONE) [Concomitant]
  11. MAXZIDE (HYDROCHLOROTHAIZIDE, TRIAMTERENE) (HYDROCHLOROTHIAZIDE, TRIAM [Concomitant]
  12. COUMADIN [Concomitant]
  13. ASPIRIN (ACETYLSALCYLIC ACID) (ACETYLSALICYLIC ACID) [Concomitant]

REACTIONS (12)
  - BLOOD POTASSIUM ABNORMAL [None]
  - DIARRHOEA [None]
  - DYSPNOEA [None]
  - FATIGUE [None]
  - HEART RATE DECREASED [None]
  - INSOMNIA [None]
  - MALAISE [None]
  - OEDEMA PERIPHERAL [None]
  - PAIN [None]
  - RHINORRHOEA [None]
  - WEIGHT INCREASED [None]
  - WHEEZING [None]
